FAERS Safety Report 7607010-1 (Version None)
Quarter: 2011Q3

REPORT INFORMATION
  Report Type: 
  Country: None (occurrence: None)
  Receive Date: 20110706
  Receipt Date: 20110628
  Transmission Date: 20111222
  Serious: Yes (Hospitalization)
  Sender: FDA-Public Use
  Company Number: HCTZ-11-02

PATIENT
  Age: 46 Year
  Sex: Female

DRUGS (2)
  1. HYDROCHLOROTHIAZIDE [Suspect]
     Indication: HYPERTENSION
     Dosage: 25MG.
  2. ATENOLOL [Concomitant]

REACTIONS (6)
  - QRS AXIS ABNORMAL [None]
  - BODY TEMPERATURE INCREASED [None]
  - PULMONARY OEDEMA [None]
  - SHOCK [None]
  - DIZZINESS [None]
  - NAUSEA [None]
